FAERS Safety Report 15378577 (Version 2)
Quarter: 2018Q4

REPORT INFORMATION
  Report Type: Spontaneous
  Country: US (occurrence: US)
  Receive Date: 20180913
  Receipt Date: 20181018
  Transmission Date: 20190204
  Serious: No
  Sender: FDA-Public Use
  Company Number: PHHY2018US095780

PATIENT
  Sex: Female

DRUGS (1)
  1. ZADITOR [Suspect]
     Active Substance: KETOTIFEN FUMARATE
     Indication: EYE ALLERGY
     Route: 047

REACTIONS (5)
  - Product quality issue [Unknown]
  - Vision blurred [Unknown]
  - Eye discharge [Unknown]
  - Eye irritation [Unknown]
  - Ocular hyperaemia [Unknown]
